FAERS Safety Report 9895216 (Version 2)
Quarter: 2014Q1

REPORT INFORMATION
  Report Type: Spontaneous
  Country: US (occurrence: US)
  Receive Date: 20140213
  Receipt Date: 20140213
  Transmission Date: 20141002
  Serious: No
  Sender: FDA-Public Use
  Company Number: US-BRISTOL-MYERS SQUIBB COMPANY-19357029

PATIENT
  Age: 69 Year
  Sex: Female
  Weight: 57.59 kg

DRUGS (11)
  1. ABATACEPT SUBQ INJECTION 125MG/ML [Suspect]
     Indication: RHEUMATOID ARTHRITIS
     Route: 058
     Dates: start: 20130613
  2. VITAMIN D [Concomitant]
  3. TYLENOL [Concomitant]
  4. ATENOLOL [Concomitant]
  5. PREVACID [Concomitant]
  6. NAPROXEN [Concomitant]
  7. CITRACAL + D [Concomitant]
  8. MULTIVITAMIN [Concomitant]
  9. LORATADINE [Concomitant]
  10. FUROSEMIDE [Concomitant]
  11. BACTRIM [Concomitant]

REACTIONS (1)
  - Wound [Not Recovered/Not Resolved]
